FAERS Safety Report 14099181 (Version 1)
Quarter: 2017Q4

REPORT INFORMATION
  Report Type: Spontaneous
  Country: JP (occurrence: JP)
  Receive Date: 20171017
  Receipt Date: 20171017
  Transmission Date: 20180321
  Serious: Yes (Death, Life-Threatening, Other)
  Sender: FDA-Public Use
  Company Number: JP-JNJFOC-20170929633

PATIENT
  Age: 81 Year
  Sex: Male
  Weight: 59.5 kg

DRUGS (3)
  1. XARELTO [Suspect]
     Active Substance: RIVAROXABAN
     Indication: ATRIAL FLUTTER
     Route: 048
     Dates: start: 20160121, end: 20170927
  2. XARELTO [Suspect]
     Active Substance: RIVAROXABAN
     Indication: ATRIAL FIBRILLATION
     Route: 048
     Dates: start: 20160121, end: 20170927
  3. TAMBOCOR [Concomitant]
     Active Substance: FLECAINIDE ACETATE
     Indication: PRODUCT USED FOR UNKNOWN INDICATION
     Route: 048
     Dates: start: 201503, end: 20170927

REACTIONS (8)
  - Respiratory failure [Unknown]
  - Cheyne-Stokes respiration [Unknown]
  - Depressed level of consciousness [Unknown]
  - Cerebral ventricular rupture [Unknown]
  - Glossoptosis [Unknown]
  - Cerebellar haemorrhage [Fatal]
  - Brain herniation [Unknown]
  - Supraventricular tachycardia [Unknown]

NARRATIVE: CASE EVENT DATE: 20170927
